FAERS Safety Report 9245054 (Version 1)
Quarter: 2013Q1

REPORT INFORMATION
  Report Type: Spontaneous
  Country: US (occurrence: None)
  Receive Date: 20121130
  Receipt Date: 20121130
  Transmission Date: 20140127
  Serious: Yes (Other)
  Sender: FDA-Public Use
  Company Number: US201207009354

PATIENT
  Age: 56 Year
  Sex: Male
  Weight: 119.3 kg

DRUGS (10)
  1. BYDUREON [Suspect]
     Indication: TYPE 2 DIABETES MELLITUS
     Dates: start: 20120611, end: 20120728
  2. BYETTA (EXENATIDE) PEN, DISPOSABLE [Suspect]
     Indication: TYPE 2 DIABETES MELLITUS
     Route: 058
     Dates: start: 201107, end: 20120610
  3. LOTREL (AMLODIPINE BESILATE, BENAZEPRIL HYDROCHLORIDE [Concomitant]
  4. METOPROLOL (METOPROLOL) [Concomitant]
  5. LOVASTATIN (LOVASTATIN) [Concomitant]
  6. METFORMIN (METFORMIN) [Concomitant]
  7. GLYBURIDE AND METFORMIN HCL (GLIBENCLAMIDE, METFORMIN HYDROCHLORIDE) [Concomitant]
  8. IBUPROFEN (IBUPROFEN) [Concomitant]
  9. BACLOFEN (BACLOFEN) [Concomitant]
  10. LANTUS (INSULIN GLARGINE) [Concomitant]

REACTIONS (2)
  - Pancreatitis [None]
  - Weight decreased [None]
